FAERS Safety Report 8852241 (Version 1)
Quarter: 2012Q4

REPORT INFORMATION
  Report Type: 
  Country: US (occurrence: US)
  Receive Date: 20121022
  Receipt Date: 20121022
  Transmission Date: 20130627
  Serious: No
  Sender: FDA-Public Use
  Company Number: US-MYLANLABS-2011S1020935

PATIENT
  Sex: Male

DRUGS (3)
  1. CARVEDILOL [Suspect]
     Indication: CARDIAC DISORDER
     Route: 048
     Dates: start: 200802
  2. LASIX [Concomitant]
     Dates: start: 1999
  3. COUMADIN [Concomitant]
     Dates: start: 1999

REACTIONS (1)
  - Rash [Not Recovered/Not Resolved]
